FAERS Safety Report 5007477-1 (Version None)
Quarter: 2006Q2

REPORT INFORMATION
  Report Type: 
  Country: None (occurrence: None)
  Receive Date: 20060517
  Receipt Date: 20060515
  Transmission Date: 20061013
  Serious: Yes (Other)
  Sender: FDA-Public Use
  Company Number: 219123

PATIENT
  Age: 59 Year
  Sex: Male

DRUGS (2)
  1. BEVACIZUMAB (BEVACIZUMAB) PWDR + SOLVENT, INFUSION SOLN, 100MG [Suspect]
     Indication: COLORECTAL CANCER
  2. ERBITUX [Suspect]
     Indication: COLORECTAL CANCER

REACTIONS (2)
  - DERMATITIS ACNEIFORM [None]
  - PARONYCHIA [None]
